FAERS Safety Report 6907709-6 (Version None)
Quarter: 2010Q3

REPORT INFORMATION
  Report Type: 
  Country: None (occurrence: None)
  Receive Date: 20100805
  Receipt Date: 20100727
  Transmission Date: 20110219
  Serious: Yes (Hospitalization)
  Sender: FDA-Public Use
  Company Number: JP-ASTRAZENECA-2010SE34437

PATIENT
  Age: 33529 Day
  Sex: Male
  Weight: 58 kg

DRUGS (6)
  1. BLOPRESS [Suspect]
     Indication: HYPERTENSION
     Route: 048
     Dates: start: 20091214
  2. TAKEPRON [Concomitant]
     Indication: REFLUX OESOPHAGITIS
     Route: 048
  3. PANALDINE [Concomitant]
     Indication: CEREBRAL INFARCTION
     Route: 048
  4. PURSENNID [Concomitant]
     Indication: CONSTIPATION
     Route: 048
     Dates: start: 20031020
  5. MEVALOTIN [Concomitant]
     Indication: HYPERLIPIDAEMIA
     Route: 048
     Dates: start: 20020124
  6. ARTIST [Concomitant]
     Indication: TACHYCARDIA
     Route: 048
     Dates: start: 20070402

REACTIONS (1)
  - TRANSIENT ISCHAEMIC ATTACK [None]
